FAERS Safety Report 5340109-1 (Version None)
Quarter: 2007Q2

REPORT INFORMATION
  Report Type: 
  Country: None (occurrence: None)
  Receive Date: 20070525
  Receipt Date: 20070525
  Transmission Date: 20071010
  Serious: Yes (Hospitalization)
  Sender: FDA-Public Use
  Company Number: None

PATIENT
  Age: 81 Year
  Sex: Male
  Weight: 58.7 kg

DRUGS (10)
  1. AMIODARONE HCL [Suspect]
     Indication: ATRIAL FIBRILLATION
     Dosage: 200MG DAY PO
     Route: 048
  2. LEVAQUIN [Concomitant]
  3. ZANTAC [Concomitant]
  4. LIPITOR [Concomitant]
  5. ASPIRIN [Concomitant]
  6. ZETIA [Concomitant]
  7. .. [Concomitant]
  8. ARICEPT [Concomitant]
  9. NORVASC [Concomitant]
  10. HYZAAR [Concomitant]

REACTIONS (9)
  - CHILLS [None]
  - CHRONIC OBSTRUCTIVE PULMONARY DISEASE [None]
  - DYSPNOEA [None]
  - OXYGEN SATURATION DECREASED [None]
  - PNEUMONIA [None]
  - PULMONARY FIBROSIS [None]
  - PULMONARY MASS [None]
  - PULMONARY TOXICITY [None]
  - PYREXIA [None]
